FAERS Safety Report 17226120 (Version 3)
Quarter: 2020Q1

REPORT INFORMATION
  Report Type: Spontaneous
  Country: US (occurrence: US)
  Receive Date: 20200102
  Receipt Date: 20200127
  Transmission Date: 20200409
  Serious: No
  Sender: FDA-Public Use
  Company Number: US-BAYER-2019-233857

PATIENT
  Sex: Female

DRUGS (1)
  1. ESTRADIOL. [Suspect]
     Active Substance: ESTRADIOL
     Dosage: 37.5 MCG/24HR, CONT
     Route: 062

REACTIONS (4)
  - Urticaria [None]
  - Application site reaction [None]
  - Product adhesion issue [None]
  - Application site irritation [None]
